FAERS Safety Report 5389609-9 (Version None)
Quarter: 2007Q3

REPORT INFORMATION
  Report Type: 
  Country: None (occurrence: None)
  Receive Date: 20070717
  Receipt Date: 20070706
  Transmission Date: 20080115
  Serious: Yes (Hospitalization)
  Sender: FDA-Public Use
  Company Number: PHFR2007IE01358

PATIENT
  Age: 50 Year
  Sex: Female
  Weight: 88.6 kg

DRUGS (5)
  1. AMISULPRIDE [Concomitant]
     Indication: SCHIZOPHRENIA
     Dosage: 800MG/DAY
     Route: 048
  2. CHLORPROMAZINE [Concomitant]
     Dosage: UNK, UNK
     Route: 065
  3. LITHIUM CARBONATE [Suspect]
     Indication: SCHIZOPHRENIA
     Dosage: 1200MG / DAY
     Route: 048
  4. CLOZARIL [Suspect]
     Indication: SCHIZOPHRENIA
     Dosage: 600 MG/DAY
     Route: 048
     Dates: start: 20031204, end: 20070416
  5. ALPRAZOLAM [Concomitant]
     Indication: ANXIETY
     Dosage: 0.5MG/DAY
     Route: 048

REACTIONS (11)
  - BLOOD CREATININE INCREASED [None]
  - BLOOD POTASSIUM INCREASED [None]
  - BLOOD SODIUM INCREASED [None]
  - BLOOD UREA INCREASED [None]
  - CONFUSIONAL STATE [None]
  - DIARRHOEA [None]
  - FLUSHING [None]
  - LOCKED-IN SYNDROME [None]
  - PSYCHOMOTOR RETARDATION [None]
  - VOMITING [None]
  - WHITE BLOOD CELL COUNT INCREASED [None]
